FAERS Safety Report 8095068-8 (Version None)
Quarter: 2012Q1

REPORT INFORMATION
  Report Type: 
  Country: None (occurrence: None)
  Receive Date: 20120131
  Receipt Date: 20120124
  Transmission Date: 20120608
  Serious: Yes (Life-Threatening, Hospitalization, Disabling)
  Sender: FDA-Public Use
  Company Number: DE-ABBOTT-12P-062-0897879-00

PATIENT
  Age: 62 Year
  Sex: Female

DRUGS (1)
  1. VALPROIC ACID [Suspect]
     Indication: CONVULSION
     Route: 048
     Dates: start: 20040101, end: 20110321

REACTIONS (4)
  - MENTAL IMPAIRMENT [None]
  - PARESIS [None]
  - BEDRIDDEN [None]
  - TOXIC ENCEPHALOPATHY [None]
